FAERS Safety Report 5278951-8 (Version None)
Quarter: 2007Q1

REPORT INFORMATION
  Report Type: 
  Country: None (occurrence: None)
  Receive Date: 20070327
  Receipt Date: 20070327
  Transmission Date: 20070707
  Serious: Yes (Disabling)
  Sender: FDA-Public Use
  Company Number: None

PATIENT
  Age: 39 Year
  Sex: Female
  Weight: 99.7913 kg

DRUGS (1)
  1. MINOCYCLINE 75MG WALMART PHARMACY [Suspect]
     Indication: ACNE
     Dosage: 60 TWICE DAILY
     Dates: start: 20070222, end: 20070319

REACTIONS (1)
  - HEADACHE [None]
